FAERS Safety Report 14261418 (Version 1)
Quarter: 2017Q4

REPORT INFORMATION
  Report Type: Spontaneous
  Country: DE (occurrence: DE)
  Receive Date: 20171208
  Receipt Date: 20171208
  Transmission Date: 20180321
  Serious: Yes (Other)
  Sender: FDA-Public Use
  Company Number: DE-ASTELLAS-2017US051582

PATIENT
  Sex: Male

DRUGS (1)
  1. VESIKUR [Suspect]
     Active Substance: SOLIFENACIN SUCCINATE
     Indication: PRODUCT USED FOR UNKNOWN INDICATION
     Route: 065

REACTIONS (6)
  - Apparent death [Unknown]
  - Circulatory collapse [Unknown]
  - Asthenia [Unknown]
  - Paraesthesia [Unknown]
  - Pain [Unknown]
  - Treatment noncompliance [Unknown]
